FAERS Safety Report 10358022 (Version 3)
Quarter: 2014Q4

REPORT INFORMATION
  Report Type: Spontaneous
  Country: JP (occurrence: JP)
  Receive Date: 20140801
  Receipt Date: 20141020
  Transmission Date: 20150528
  Serious: Yes (Death, Other)
  Sender: FDA-Public Use
  Company Number: JP-AMGEN-JPNSP2014038891

PATIENT
  Age: 67 Year
  Sex: Female
  Weight: 46.5 kg

DRUGS (10)
  1. RABEPRAZOLE SODIUM. [Concomitant]
     Active Substance: RABEPRAZOLE SODIUM
     Dosage: 10 MG, QD
     Route: 048
     Dates: start: 20140429, end: 20140522
  2. ALDACTONE [Concomitant]
     Active Substance: SPIRONOLACTONE
     Dosage: 25 MG, BID
     Route: 048
     Dates: start: 20140429, end: 20140522
  3. MINOMYCIN [Concomitant]
     Active Substance: MINOCYCLINE HYDROCHLORIDE
     Dosage: 100 MG, BID
     Route: 048
     Dates: start: 20140516, end: 20140522
  4. VECTIBIX [Suspect]
     Active Substance: PANITUMUMAB
     Indication: COLON CANCER
     Dosage: 280 MG, Q2WEEKS
     Route: 041
     Dates: start: 20140516, end: 20140516
  5. LASIX [Concomitant]
     Active Substance: FUROSEMIDE
     Dosage: 20 MG, BID
     Route: 048
     Dates: start: 20140429, end: 20140522
  6. OXYCONTIN [Concomitant]
     Active Substance: OXYCODONE HYDROCHLORIDE
     Dosage: 15 MG, BID
     Route: 048
  7. LACTULOSE. [Concomitant]
     Active Substance: LACTULOSE
     Indication: AMMONIA INCREASED
     Dosage: 20 ML, TID
     Route: 048
     Dates: start: 20140514, end: 20140520
  8. ADALAT [Concomitant]
     Active Substance: NIFEDIPINE
     Dosage: 10 MG, BID
     Route: 048
     Dates: start: 20140429, end: 20140522
  9. OXINORM                            /00045603/ [Concomitant]
     Dosage: 7.5 MG, UNK
     Route: 048
  10. HYPEN                              /00613801/ [Concomitant]
     Active Substance: ETODOLAC
     Dosage: 200 MG, BID
     Route: 048
     Dates: start: 20140429, end: 20140522

REACTIONS (3)
  - Diarrhoea [Not Recovered/Not Resolved]
  - Stomatitis [Not Recovered/Not Resolved]
  - Interstitial lung disease [Fatal]

NARRATIVE: CASE EVENT DATE: 20140516
